FAERS Safety Report 8098436-3 (Version None)
Quarter: 2012Q1

REPORT INFORMATION
  Report Type: 
  Country: None (occurrence: None)
  Receive Date: 20120131
  Receipt Date: 20120118
  Transmission Date: 20120608
  Serious: Yes (Death)
  Sender: FDA-Public Use
  Company Number: ES-ELI_LILLY_AND_COMPANY-ES201201005092

PATIENT
  Sex: Female
  Weight: 64 kg

DRUGS (5)
  1. HEMOVAS [Concomitant]
     Indication: ANGIOPATHY
     Dosage: 1 DF, BID
     Route: 048
  2. ESERTIA [Concomitant]
     Indication: ANXIETY
     Dosage: 20 MG, QD
     Route: 048
  3. LORAZEPAM [Concomitant]
     Dosage: UNK, BID
     Route: 048
  4. FORTEO [Suspect]
     Indication: OSTEOPOROSIS
     Dosage: 20 UG, QD
     Route: 058
     Dates: start: 20100608
  5. LESCOL [Concomitant]
     Dosage: 1 DF, QD
     Route: 048

REACTIONS (1)
  - CEREBROVASCULAR ACCIDENT [None]
